FAERS Safety Report 11572501 (Version 1)
Quarter: 2015Q3

REPORT INFORMATION
  Report Type: Spontaneous
  Country: US (occurrence: US)
  Receive Date: 20150929
  Receipt Date: 20150929
  Transmission Date: 20151125
  Serious: No
  Sender: FDA-Public Use
  Company Number: US-BAYER-2015-426891

PATIENT
  Sex: Female

DRUGS (2)
  1. LEVAQUIN [Suspect]
     Active Substance: LEVOFLOXACIN
     Dosage: 750 MG, UNK
     Dates: start: 201002
  2. AVELOX [Suspect]
     Active Substance: MOXIFLOXACIN HYDROCHLORIDE
     Dosage: 400 MG, UNK
     Dates: start: 2008

REACTIONS (5)
  - Injury [Not Recovered/Not Resolved]
  - Emotional disorder [Not Recovered/Not Resolved]
  - Adverse event [None]
  - Neuropathy peripheral [None]
  - Pain [None]
